FAERS Safety Report 4665541-0 (Version None)
Quarter: 2005Q2

REPORT INFORMATION
  Report Type: 
  Country: None (occurrence: None)
  Receive Date: 20050519
  Receipt Date: 20050412
  Transmission Date: 20051028
  Serious: Yes (Hospitalization)
  Sender: FDA-Public Use
  Company Number: 200513020US

PATIENT
  Sex: Female

DRUGS (12)
  1. TAXOTERE [Suspect]
     Indication: BREAST CANCER
     Route: 042
     Dates: start: 20050407, end: 20050407
  2. ADRIAMYCIN PFS [Suspect]
     Indication: BREAST CANCER
     Route: 042
     Dates: end: 20050317
  3. CYTOXAN [Suspect]
     Indication: BREAST CANCER
     Route: 042
     Dates: end: 20050317
  4. DECADRON [Concomitant]
     Indication: PREMEDICATION
     Dosage: DOSE: 2 TABLETS
     Dates: start: 20050406
  5. ZOLOFT [Concomitant]
  6. XANAX [Concomitant]
  7. ZOFRAN [Concomitant]
     Indication: NAUSEA
  8. PROTONIX [Concomitant]
     Route: 048
  9. HYDROCODONE BITARTRATE [Concomitant]
  10. DARVOCET-N 100 [Concomitant]
  11. COMPAZINE [Concomitant]
     Indication: NAUSEA
  12. ARANESP [Concomitant]

REACTIONS (8)
  - ABDOMINAL PAIN [None]
  - BACTERIA URINE IDENTIFIED [None]
  - COLITIS [None]
  - ELECTROLYTE IMBALANCE [None]
  - ILEUS [None]
  - PANCREATITIS ACUTE [None]
  - PROTEIN TOTAL DECREASED [None]
  - STAPHYLOCOCCAL INFECTION [None]
